FAERS Safety Report 5043063-5 (Version None)
Quarter: 2006Q2

REPORT INFORMATION
  Report Type: 
  Country: None (occurrence: None)
  Receive Date: 20060628
  Receipt Date: 20060615
  Transmission Date: 20061013
  Serious: Yes (Hospitalization)
  Sender: FDA-Public Use
  Company Number: 2006PV014409

PATIENT
  Age: 68 Year
  Sex: Female
  Weight: 67.1324 kg

DRUGS (7)
  1. BYETTA [Suspect]
     Indication: DIABETES MELLITUS NON-INSULIN-DEPENDENT
     Dosage: 5 MCG; QD; SC
     Route: 058
     Dates: start: 20060519, end: 20060519
  2. METFORMIN [Concomitant]
  3. NOVOLOG [Concomitant]
  4. LANTUS [Concomitant]
  5. PRAVACHOL [Concomitant]
  6. LISINOPRIL [Concomitant]
  7. IBANDRONATE SODIUM [Concomitant]

REACTIONS (3)
  - CYSTITIS [None]
  - DEHYDRATION [None]
  - DIABETIC KETOACIDOSIS [None]
